FAERS Safety Report 6309570-X (Version None)
Quarter: 2009Q3

REPORT INFORMATION
  Report Type: 
  Country: None (occurrence: None)
  Receive Date: 20090814
  Receipt Date: 20090804
  Transmission Date: 20100115
  Serious: Yes (Disabling)
  Sender: FDA-Public Use
  Company Number: PHHY2009IT30358

PATIENT
  Sex: Female

DRUGS (5)
  1. ZOMETA [Suspect]
     Indication: BREAST CANCER METASTATIC
     Dosage: UNK, MONTHLY
     Route: 042
     Dates: start: 20050526, end: 20070413
  2. DIDROGYL [Concomitant]
  3. MATRIX [Concomitant]
     Dosage: UNK
  4. AROMASIN [Concomitant]
  5. CALCITONIN, HUMAN [Concomitant]

REACTIONS (2)
  - BONE DISORDER [None]
  - OSTEONECROSIS [None]
